FAERS Safety Report 22081451 (Version 2)
Quarter: 2023Q2

REPORT INFORMATION
  Report Type: Report from Study
  Country: US (occurrence: US)
  Receive Date: 20230310
  Receipt Date: 20230414
  Transmission Date: 20230722
  Serious: Yes (Other)
  Sender: FDA-Public Use
  Company Number: US-ABBVIE-4334178

PATIENT
  Sex: Female

DRUGS (2)
  1. HUMIRA [Suspect]
     Active Substance: ADALIMUMAB
     Indication: Crohn^s disease
     Route: 058
     Dates: start: 20220921
  2. HUMIRA [Suspect]
     Active Substance: ADALIMUMAB
     Dates: start: 20220924

REACTIONS (5)
  - Ovarian cyst [Recovering/Resolving]
  - Injection site bruising [Unknown]
  - Injection site pain [Recovering/Resolving]
  - Uterine leiomyoma [Recovering/Resolving]
  - Injection site swelling [Unknown]
